FAERS Safety Report 16354755 (Version 1)
Quarter: 2019Q2

REPORT INFORMATION
  Report Type: Spontaneous
  Country: PT (occurrence: PT)
  Receive Date: 20190524
  Receipt Date: 20190524
  Transmission Date: 20190711
  Serious: Yes (Other)
  Sender: FDA-Public Use
  Company Number: PT-ELI_LILLY_AND_COMPANY-PT201905007987

PATIENT
  Sex: Male

DRUGS (8)
  1. OXALIPLATIN. [Suspect]
     Active Substance: OXALIPLATIN
     Dosage: UNK UNK, CYCLICAL
     Route: 065
     Dates: start: 201806
  2. GEMCITABINE HYDROCHLORIDE. [Suspect]
     Active Substance: GEMCITABINE HYDROCHLORIDE
     Dosage: UNK, CYCLICAL
     Route: 065
     Dates: start: 201511, end: 201601
  3. GEMCITABINE HYDROCHLORIDE. [Suspect]
     Active Substance: GEMCITABINE HYDROCHLORIDE
     Indication: FOLLICULAR THYROID CANCER
     Dosage: UNK UNK, CYCLICAL
     Route: 065
     Dates: start: 201806
  4. GEMCITABINE HYDROCHLORIDE. [Suspect]
     Active Substance: GEMCITABINE HYDROCHLORIDE
     Dosage: UNK, CYCLICAL
     Route: 065
     Dates: start: 201711, end: 201802
  5. SUNITINIB [Concomitant]
     Active Substance: SUNITINIB
     Indication: FOLLICULAR THYROID CANCER
     Dosage: UNK, UNKNOWN
     Route: 065
     Dates: start: 201511, end: 201605
  6. SUNITINIB [Concomitant]
     Active Substance: SUNITINIB
     Dosage: UNK
     Route: 065
     Dates: start: 2015
  7. OXALIPLATIN. [Suspect]
     Active Substance: OXALIPLATIN
     Indication: FOLLICULAR THYROID CANCER
     Dosage: UNK
     Route: 065
     Dates: start: 201511, end: 201601
  8. OXALIPLATIN. [Suspect]
     Active Substance: OXALIPLATIN
     Dosage: UNK
     Route: 065
     Dates: start: 201711, end: 201802

REACTIONS (2)
  - Off label use [Not Recovered/Not Resolved]
  - Neurotoxicity [Unknown]
